FAERS Safety Report 21264439 (Version 2)
Quarter: 2022Q3

REPORT INFORMATION
  Report Type: Spontaneous
  Country: US (occurrence: US)
  Receive Date: 20220829
  Receipt Date: 20220901
  Transmission Date: 20221026
  Serious: Yes (Other)
  Sender: FDA-Public Use
  Company Number: US-ALLERGAN-2227534US

PATIENT
  Sex: Female

DRUGS (1)
  1. BOTOX [Suspect]
     Active Substance: ONABOTULINUMTOXINA
     Indication: Off label use
     Dosage: UNK UNK, SINGLE

REACTIONS (7)
  - Brain injury [Recovered/Resolved]
  - Road traffic accident [Recovered/Resolved]
  - Concussion [Recovered/Resolved]
  - Post-traumatic stress disorder [Unknown]
  - Off label use [Unknown]
  - Road traffic accident [Not Recovered/Not Resolved]
  - Headache [Unknown]

NARRATIVE: CASE EVENT DATE: 20210101
